FAERS Safety Report 23678573 (Version 1)
Quarter: 2024Q1

REPORT INFORMATION
  Report Type: Spontaneous
  Country: SE (occurrence: SE)
  Receive Date: 20240327
  Receipt Date: 20240327
  Transmission Date: 20240410
  Serious: Yes (Other)
  Sender: FDA-Public Use
  Company Number: SE-Santen Oy-2024-SWE-002222

PATIENT

DRUGS (1)
  1. LATANOPROST\NETARSUDIL MESYLATE [Suspect]
     Active Substance: LATANOPROST\NETARSUDIL MESYLATE
     Indication: Product used for unknown indication
     Dosage: UNK
     Route: 047
     Dates: start: 20240101, end: 20240108

REACTIONS (2)
  - Intraocular pressure increased [Unknown]
  - Drug ineffective [Unknown]

NARRATIVE: CASE EVENT DATE: 20240101
